FAERS Safety Report 8545755-X (Version None)
Quarter: 2012Q3

REPORT INFORMATION
  Report Type: 
  Country: None (occurrence: None)
  Receive Date: 20120727
  Receipt Date: 20120723
  Transmission Date: 20120928
  Serious: Yes (Death, Hospitalization)
  Sender: FDA-Public Use
  Company Number: US-CELGENEUS-163-21880-12072534

PATIENT
  Sex: Male
  Weight: 70.9 kg

DRUGS (18)
  1. AMLODIPINE [Concomitant]
     Indication: HYPERTENSION
     Dosage: 10 MILLIGRAM
     Route: 048
     Dates: start: 20120704, end: 20120704
  2. REVLIMID [Suspect]
     Indication: NON-HODGKIN'S LYMPHOMA
     Dosage: 25 MILLIGRAM
     Route: 048
     Dates: start: 20120711
  3. ACYCLOVIR [Concomitant]
     Indication: ANTIVIRAL TREATMENT
     Dosage: 800 MILLIGRAM
     Route: 048
     Dates: start: 20120502
  4. ALTOVASTATIN [Concomitant]
     Dosage: 10 MILLIGRAM
     Route: 048
     Dates: start: 20120709
  5. CODEINE-GUAIFENESIN [Concomitant]
     Indication: COUGH
     Dosage: 5-10 ML
     Route: 048
     Dates: start: 20120706
  6. FLUCONAZOLE [Concomitant]
     Indication: ANTIFUNGAL PROPHYLAXIS
     Dosage: 400 MILLIGRAM
     Route: 048
     Dates: start: 20120601
  7. INSULIN-LISPRO [Concomitant]
     Route: 058
     Dates: start: 20120501
  8. RITUXIMAB [Suspect]
     Dosage: 53.5714 MILLIGRAM/SQ. METER
     Route: 065
     Dates: start: 20120718, end: 20120718
  9. BENZOMATATE [Concomitant]
     Indication: COUGH
     Dosage: 200 MILLIGRAM
     Route: 048
     Dates: start: 20120706
  10. MULTI-VITAMINS [Concomitant]
     Dosage: 1 TABLET
     Route: 048
     Dates: start: 20120517
  11. OMEPRAZOLE [Concomitant]
     Dosage: 20 MILLIGRAM
     Route: 048
     Dates: start: 20120502
  12. RITUXIMAB [Suspect]
     Dosage: 57.1429 MILLIGRAM
     Route: 041
     Dates: start: 20120529, end: 20120625
  13. RITUXIMAB [Suspect]
     Indication: NON-HODGKIN'S LYMPHOMA
     Dosage: 53.5714 MILLIGRAM/SQ. METER
     Route: 065
     Dates: start: 20120711, end: 20120711
  14. DIPHENHYDRAMINE HCL [Concomitant]
     Indication: NAUSEA
     Dosage: 25-50MG
     Route: 048
     Dates: start: 20120501, end: 20120701
  15. MYCOPHENOLATE MOFETIL [Concomitant]
     Dosage: 2000 MILLIGRAM
     Route: 048
     Dates: start: 20110601
  16. FUROSEMIDE [Concomitant]
     Dosage: 20 MILLIGRAM
     Route: 041
     Dates: start: 20120718, end: 20120719
  17. INSULIN-LISPRO [Concomitant]
  18. BECLOMETHASONE DIPROPIONATE [Concomitant]
     Dosage: 2 MILLIGRAM
     Route: 048
     Dates: start: 20120719

REACTIONS (2)
  - DEATH [None]
  - TUMOUR FLARE [None]
